FAERS Safety Report 6098781-7 (Version None)
Quarter: 2009Q1

REPORT INFORMATION
  Report Type: 
  Country: None (occurrence: None)
  Receive Date: 20090302
  Receipt Date: 20090225
  Transmission Date: 20090719
  Serious: Yes (Life-Threatening, Hospitalization, Other)
  Sender: FDA-Public Use
  Company Number: JP-ELI_LILLY_AND_COMPANY-JP200803005464

PATIENT
  Sex: Male
  Weight: 58 kg

DRUGS (11)
  1. PEMETREXED [Suspect]
     Indication: PLEURAL MESOTHELIOMA MALIGNANT
     Dosage: 750 MG, OTHER
     Route: 042
     Dates: start: 20071016, end: 20071113
  2. CISPLATIN [Suspect]
     Indication: PLEURAL MESOTHELIOMA MALIGNANT
     Dosage: 113 MG, OTHER
     Route: 042
     Dates: start: 20071016, end: 20071113
  3. PANVITAN [Concomitant]
     Dosage: 1 G, DAILY (1/D)
     Route: 048
     Dates: start: 20070829, end: 20071220
  4. CYANOCOBALAMIN [Concomitant]
     Dosage: 1 MG, OTHER
     Route: 030
     Dates: start: 20070928, end: 20070928
  5. PRIMPERAN /00041901/ [Concomitant]
     Indication: ABDOMINAL PAIN
     Dosage: 10 MG, OTHER
     Route: 042
     Dates: start: 20071117, end: 20071117
  6. GLYCERIN [Concomitant]
     Indication: CONSTIPATION
     Dosage: 60 ML, DAILY (1/D)
     Route: 054
     Dates: start: 20071118, end: 20071119
  7. PURSENNID [Concomitant]
     Indication: ABDOMINAL DISTENSION
     Dosage: 24 MG, DAILY (1/D)
     Route: 048
     Dates: start: 20071024, end: 20071118
  8. MAGLAX /JPN/ [Concomitant]
     Dosage: 750 UG, DAILY (1/D)
     Route: 048
     Dates: start: 20071014, end: 20071118
  9. BIO THREE [Concomitant]
     Indication: DIARRHOEA
     Dosage: 3 G, DAILY (1/D)
     Route: 048
     Dates: start: 20071118, end: 20071119
  10. TANNALBIN [Concomitant]
     Indication: DIARRHOEA
     Dosage: 1 G, DAILY (1/D)
     Route: 048
     Dates: start: 20071118, end: 20071119
  11. ADSORBIN [Concomitant]
     Indication: DIARRHOEA
     Dosage: 1 G, DAILY (1/D)
     Route: 048
     Dates: start: 20071118, end: 20071119

REACTIONS (5)
  - DISSEMINATED INTRAVASCULAR COAGULATION [None]
  - LARGE INTESTINE PERFORATION [None]
  - NAUSEA [None]
  - SEPSIS [None]
  - SUBILEUS [None]
